FAERS Safety Report 9366095 (Version 1)
Quarter: 2013Q2

REPORT INFORMATION
  Report Type: Spontaneous
  Country: ZA (occurrence: None)
  Receive Date: 20130619
  Receipt Date: 20130619
  Transmission Date: 20140414
  Serious: Yes (Other)
  Sender: FDA-Public Use
  Company Number: ZA-1198757

PATIENT
  Age: 5 Month
  Sex: Male

DRUGS (2)
  1. BETAXOLOL HCL [Suspect]
     Indication: ECTROPION
     Dosage: TO NOT CONTINUING?
     Route: 047
  2. DORZOLAMIDE [Suspect]
     Indication: ECTROPION
     Dosage: (2 % 1X/8 HOURS OD OPHTHALMIC)
     Route: 047

REACTIONS (2)
  - Intraocular pressure increased [None]
  - Drug ineffective [None]
